FAERS Safety Report 10922925 (Version 2)
Quarter: 2015Q1

REPORT INFORMATION
  Report Type: Spontaneous
  Country: JP (occurrence: JP)
  Receive Date: 20150317
  Receipt Date: 20150325
  Transmission Date: 20150721
  Serious: Yes (Death)
  Sender: FDA-Public Use
  Company Number: JP-PFIZER INC-2015079757

PATIENT
  Age: 59 Year
  Sex: Male

DRUGS (1)
  1. INLYTA [Suspect]
     Active Substance: AXITINIB
     Indication: RENAL CELL CARCINOMA
     Dosage: UNK
     Dates: start: 20130222, end: 20130927

REACTIONS (7)
  - Palmar-plantar erythrodysaesthesia syndrome [Recovering/Resolving]
  - Dysgeusia [Recovering/Resolving]
  - Renal cell carcinoma [Fatal]
  - Disease progression [Fatal]
  - Decreased appetite [Recovering/Resolving]
  - Diarrhoea [Recovering/Resolving]
  - Fatigue [Recovering/Resolving]

NARRATIVE: CASE EVENT DATE: 20130405
